FAERS Safety Report 8218546-7 (Version None)
Quarter: 2012Q1

REPORT INFORMATION
  Report Type: 
  Country: None (occurrence: None)
  Receive Date: 20120319
  Receipt Date: 20120308
  Transmission Date: 20120608
  Serious: Yes (Hospitalization, Other)
  Sender: FDA-Public Use
  Company Number: US-BAYER-2010-002140

PATIENT
  Age: 32 Year
  Sex: Female
  Weight: 86.168 kg

DRUGS (12)
  1. WELLBUTRIN [Concomitant]
     Indication: MOOD SWINGS
     Dosage: UNK
     Dates: start: 20050101
  2. METOPROLOL SUCCINATE [Concomitant]
     Dosage: UNK
     Dates: start: 20080101
  3. ALPRAZOLAM [Concomitant]
     Dosage: UNK UNK, PRN
  4. FLUOXETINE [Concomitant]
     Dosage: UNK
     Dates: start: 20090101
  5. TRIVORA-21 [Concomitant]
     Dosage: UNK
     Dates: start: 20070201, end: 20070901
  6. YAZ [Suspect]
     Indication: PREMENSTRUAL SYNDROME
  7. FIORICET [Concomitant]
     Indication: HEADACHE
     Dosage: UNK
     Dates: start: 20080306, end: 20080601
  8. MULTI-VITAMIN [Concomitant]
  9. PAIN MEDICATION [Concomitant]
     Dosage: UNK
     Dates: start: 20080306
  10. AMITRIPTYLINE HCL [Concomitant]
     Dosage: UNK
     Dates: start: 20080101
  11. YAZ [Suspect]
     Indication: ORAL CONTRACEPTION
     Dosage: UNK
     Dates: start: 20060101, end: 20070101
  12. ASPIRIN [Concomitant]
     Dosage: UNK
     Dates: start: 20080306

REACTIONS (3)
  - CEREBROVASCULAR ACCIDENT [None]
  - ARRHYTHMIA [None]
  - ANEURYSM [None]
